FAERS Safety Report 18221232 (Version 2)
Quarter: 2020Q3

REPORT INFORMATION
  Report Type: Report from Study
  Country: IT (occurrence: IT)
  Receive Date: 20200902
  Receipt Date: 20200904
  Transmission Date: 20201103
  Serious: Yes (Death)
  Sender: FDA-Public Use
  Company Number: NVSC2020IT240019

PATIENT
  Age: 66 Year
  Sex: Female
  Weight: 54 kg

DRUGS (5)
  1. BYL719 [Suspect]
     Active Substance: ALPELISIB
     Indication: METAPLASIA
  2. ALBUMINA [Concomitant]
     Active Substance: ALBUMIN HUMAN
     Indication: ABDOMINAL DISTENSION
     Dosage: 1 DF (BOTTLE)
     Route: 065
     Dates: start: 20200728, end: 20200728
  3. LASIX [Concomitant]
     Active Substance: FUROSEMIDE
     Indication: POLYURIA
  4. BYL719 [Suspect]
     Active Substance: ALPELISIB
     Indication: NEOPLASM MALIGNANT
     Dosage: 300 MG
     Route: 048
     Dates: start: 20200707
  5. LASIX [Concomitant]
     Active Substance: FUROSEMIDE
     Indication: OEDEMA PERIPHERAL
     Dosage: 250 ML
     Route: 065
     Dates: start: 20200728, end: 20200728

REACTIONS (1)
  - Death [Fatal]

NARRATIVE: CASE EVENT DATE: 20200820
